FAERS Safety Report 10221391 (Version 1)
Quarter: 2014Q2

REPORT INFORMATION
  Report Type: Spontaneous
  Country: US (occurrence: None)
  Receive Date: 20140605
  Receipt Date: 20140605
  Transmission Date: 20141212
  Serious: No
  Sender: FDA-Public Use
  Company Number: None

PATIENT
  Age: 34 Year
  Sex: Male
  Weight: 87 kg

DRUGS (2)
  1. ISONIAZID [Suspect]
     Indication: LATENT TUBERCULOSIS
     Dosage: 900 MG ?1X WK X 12WK ?PO??5TH DOSE OF ONCE WEEKLY THERAPY
     Route: 048
  2. RIFAPENTINE [Suspect]
     Route: 048

REACTIONS (3)
  - Cough [None]
  - Paraesthesia oral [None]
  - Dyspnoea [None]
